FAERS Safety Report 5585261-8 (Version None)
Quarter: 2008Q1

REPORT INFORMATION
  Report Type: 
  Country: None (occurrence: None)
  Receive Date: 20080104
  Receipt Date: 20080104
  Transmission Date: 20080703
  Serious: Yes (Hospitalization)
  Sender: FDA-Public Use
  Company Number: None

PATIENT
  Sex: Male
  Weight: 94.1 kg

DRUGS (6)
  1. CYTARABINE [Suspect]
     Dosage: 35.2 G
     Dates: start: 20071211, end: 20071215
  2. ETOPOSIDE [Suspect]
     Dosage: 3336 MG
     Dates: end: 20071215
  3. ACYCLOVIR [Concomitant]
  4. VORICONAZOLE [Concomitant]
  5. LEVAQUIN [Concomitant]
  6. COMPAZINE [Concomitant]

REACTIONS (3)
  - BLOOD CULTURE POSITIVE [None]
  - INFECTION [None]
  - PYREXIA [None]
